FAERS Safety Report 21960803 (Version 1)
Quarter: 2023Q1

REPORT INFORMATION
  Report Type: Spontaneous
  Country: US (occurrence: US)
  Receive Date: 20230207
  Receipt Date: 20230207
  Transmission Date: 20230418
  Serious: No
  Sender: FDA-Public Use
  Company Number: US-APOTEX-2023AP002546

PATIENT
  Sex: Male

DRUGS (1)
  1. BRIMONIDINE TARTRATE [Suspect]
     Active Substance: BRIMONIDINE TARTRATE
     Indication: Glaucoma
     Dosage: 2 GTT DROPS, BID
     Route: 047
     Dates: start: 2022

REACTIONS (6)
  - Product dose omission issue [Unknown]
  - Device delivery system issue [Unknown]
  - Extra dose administered [Unknown]
  - Device defective [Unknown]
  - Product use issue [Unknown]
  - Erythema of eyelid [Unknown]
